FAERS Safety Report 7907992-4 (Version None)
Quarter: 2011Q4

REPORT INFORMATION
  Report Type: 
  Country: None (occurrence: None)
  Receive Date: 20111110
  Receipt Date: 20111101
  Transmission Date: 20120403
  Serious: Yes (Hospitalization)
  Sender: FDA-Public Use
  Company Number: CN-BAXTER-2011BH034868

PATIENT
  Age: 51 Year
  Sex: Female
  Weight: 42 kg

DRUGS (5)
  1. DIANEAL [Suspect]
     Indication: AZOTAEMIA
     Route: 033
     Dates: start: 20110217
  2. NORVASC [Concomitant]
     Indication: HYPERTENSION
     Route: 048
  3. DIANEAL [Suspect]
     Route: 033
     Dates: start: 20110217
  4. EPOGEN [Concomitant]
     Indication: ANAEMIA
     Route: 042
     Dates: start: 20110219
  5. POTASSIUM [Concomitant]
     Indication: HYPOKALAEMIA
     Route: 048
     Dates: start: 20110219

REACTIONS (3)
  - PERITONITIS BACTERIAL [None]
  - PYREXIA [None]
  - PERITONEAL DIALYSIS COMPLICATION [None]
